APPROVED DRUG PRODUCT: POTASSIUM CHLORIDE 10MEQ IN PLASTIC CONTAINER
Active Ingredient: POTASSIUM CHLORIDE
Strength: 14.9MG/ML
Dosage Form/Route: INJECTABLE;INJECTION
Application: N019904 | Product #001 | TE Code: AP
Applicant: BAXTER HEALTHCARE CORP
Approved: Dec 26, 1989 | RLD: Yes | RS: Yes | Type: RX